FAERS Safety Report 21312147 (Version 1)
Quarter: 2022Q3

REPORT INFORMATION
  Report Type: Spontaneous
  Country: US (occurrence: None)
  Receive Date: 20220909
  Receipt Date: 20220909
  Transmission Date: 20221027
  Serious: No
  Sender: FDA-Public Use
  Company Number: US-ARIS GLOBAL-202204-0737

PATIENT
  Age: 26 Year
  Sex: Male

DRUGS (2)
  1. OXERVATE [Suspect]
     Active Substance: CENEGERMIN-BKBJ
     Indication: Neurotrophic keratopathy
     Route: 047
     Dates: start: 20220416
  2. VITAMINS [Concomitant]
     Active Substance: VITAMINS

REACTIONS (8)
  - Eye pain [Recovering/Resolving]
  - Ocular hyperaemia [Recovering/Resolving]
  - Eye inflammation [Recovering/Resolving]
  - Headache [Recovering/Resolving]
  - Nausea [Recovering/Resolving]
  - Asthenopia [Unknown]
  - Cognitive disorder [Recovered/Resolved]
  - Speech disorder [Recovered/Resolved]

NARRATIVE: CASE EVENT DATE: 20220418
